FAERS Safety Report 23608332 (Version 1)
Quarter: 2024Q1

REPORT INFORMATION
  Report Type: Report from Study
  Country: CA (occurrence: CA)
  Receive Date: 20240307
  Receipt Date: 20240307
  Transmission Date: 20240410
  Serious: Yes (Other)
  Sender: FDA-Public Use
  Company Number: CA-JNJFOC-20240104298

PATIENT
  Age: 21 Year
  Sex: Male

DRUGS (2)
  1. REMICADE [Suspect]
     Active Substance: INFLIXIMAB
     Indication: Crohn^s disease
     Route: 041
  2. REMICADE [Suspect]
     Active Substance: INFLIXIMAB
     Route: 041

REACTIONS (5)
  - Osteomyelitis [Recovered/Resolved]
  - Cough [Recovered/Resolved]
  - Ear infection [Recovered/Resolved]
  - Muscle tightness [Unknown]
  - Off label use [Unknown]

NARRATIVE: CASE EVENT DATE: 20231218
